FAERS Safety Report 17218476 (Version 1)
Quarter: 2020Q1

REPORT INFORMATION
  Report Type: Spontaneous
  Country: US (occurrence: US)
  Receive Date: 20191230
  Receipt Date: 20191230
  Transmission Date: 20200409
  Serious: Yes (Other)
  Sender: FDA-Public Use
  Company Number: None

PATIENT
  Age: 68 Year
  Sex: Male
  Weight: 67.5 kg

DRUGS (3)
  1. OSELTAMIVIR PHOSPHATE CAPSULES 75MG [Suspect]
     Active Substance: OSELTAMIVIR PHOSPHATE
     Indication: INFLUENZA VIRUS TEST POSITIVE
     Dosage: ?          QUANTITY:1 CAPSULE(S);?
     Route: 048
  2. 81 MG ASPIRIN [Concomitant]
     Active Substance: ASPIRIN
  3. ATORVASTATIN [Concomitant]
     Active Substance: ATORVASTATIN

REACTIONS (6)
  - Dizziness [None]
  - Headache [None]
  - Fatigue [None]
  - Nausea [None]
  - Asthenia [None]
  - Malaise [None]

NARRATIVE: CASE EVENT DATE: 20191226
